FAERS Safety Report 11375852 (Version 1)
Quarter: 2015Q3

REPORT INFORMATION
  Report Type: Spontaneous
  Country: US (occurrence: US)
  Receive Date: 20150813
  Receipt Date: 20150813
  Transmission Date: 20151125
  Serious: Yes (Other)
  Sender: FDA-Public Use
  Company Number: US-BAUSCH-BL-2015-018533

PATIENT
  Sex: Female

DRUGS (2)
  1. PRIMIDONE. [Suspect]
     Active Substance: PRIMIDONE
     Route: 048
  2. PRIMIDONE. [Suspect]
     Active Substance: PRIMIDONE
     Route: 048
     Dates: start: 2015

REACTIONS (3)
  - Malaise [Not Recovered/Not Resolved]
  - Seizure [Not Recovered/Not Resolved]
  - Nervousness [Not Recovered/Not Resolved]

NARRATIVE: CASE EVENT DATE: 2015
